FAERS Safety Report 14076227 (Version 1)
Quarter: 2017Q4

REPORT INFORMATION
  Report Type: Spontaneous
  Country: ES (occurrence: ES)
  Receive Date: 20171010
  Receipt Date: 20171010
  Transmission Date: 20180321
  Serious: Yes (Other)
  Sender: FDA-Public Use
  Company Number: ES-ASTRAZENECA-2017SF01404

PATIENT
  Age: 71 Year
  Sex: Male

DRUGS (1)
  1. BRILIQUE [Suspect]
     Active Substance: TICAGRELOR
     Dosage: 90.0MG UNKNOWN
     Route: 048
     Dates: start: 20160401, end: 20170901

REACTIONS (8)
  - Disturbance in attention [Recovering/Resolving]
  - Arthropathy [Recovering/Resolving]
  - Haematochezia [Recovering/Resolving]
  - Epistaxis [Recovering/Resolving]
  - Oedema [Recovering/Resolving]
  - Dizziness postural [Recovering/Resolving]
  - Visual impairment [Recovering/Resolving]
  - Skin depigmentation [Recovering/Resolving]

NARRATIVE: CASE EVENT DATE: 20170301
